FAERS Safety Report 22663024 (Version 5)
Quarter: 2025Q3

REPORT INFORMATION
  Report Type: Spontaneous
  Country: EU (occurrence: EU)
  Receive Date: 20230703
  Receipt Date: 20250918
  Transmission Date: 20251020
  Serious: Yes (Other)
  Sender: AUROBINDO
  Company Number: EU-AUROBINDO-AUR-APL-2023-044916

PATIENT
  Age: 36 Year
  Sex: Female

DRUGS (13)
  1. PREGABALIN [Suspect]
     Active Substance: PREGABALIN
     Indication: Back pain
     Dosage: 600 MILLIGRAM, ONCE A DAY (600 MILLIGRAM EVEN MORE-UP TO 2,400 MG DURING STRESS)
     Route: 048
  2. PREGABALIN [Suspect]
     Active Substance: PREGABALIN
     Indication: Anxiety
     Route: 048
  3. PREGABALIN [Suspect]
     Active Substance: PREGABALIN
     Indication: Stress
     Route: 048
  4. PREGABALIN [Suspect]
     Active Substance: PREGABALIN
     Route: 048
  5. PREGABALIN [Suspect]
     Active Substance: PREGABALIN
     Dosage: 25 MILLIGRAM, ONCE A DAY
     Route: 048
  6. PREGABALIN [Suspect]
     Active Substance: PREGABALIN
     Route: 048
  7. PREGABALIN [Suspect]
     Active Substance: PREGABALIN
     Route: 048
  8. SERTRALINE [Concomitant]
     Active Substance: SERTRALINE HYDROCHLORIDE
     Indication: Anxiety
     Dosage: 150 MILLIGRAM, ONCE A DAY
     Route: 065
  9. SERTRALINE [Concomitant]
     Active Substance: SERTRALINE HYDROCHLORIDE
     Indication: Back pain
  10. SERTRALINE [Concomitant]
     Active Substance: SERTRALINE HYDROCHLORIDE
     Indication: Stress
  11. MIRTAZAPINE [Concomitant]
     Active Substance: MIRTAZAPINE
     Indication: Anxiety
     Dosage: 15 MILLIGRAM, ONCE A DAY
     Route: 065
  12. MIRTAZAPINE [Concomitant]
     Active Substance: MIRTAZAPINE
     Indication: Insomnia
  13. MIRTAZAPINE [Concomitant]
     Active Substance: MIRTAZAPINE
     Indication: Stress

REACTIONS (13)
  - Toxicity to various agents [Recovered/Resolved]
  - Drug dependence [Recovering/Resolving]
  - Drug abuse [Recovered/Resolved]
  - Condition aggravated [Unknown]
  - Insomnia [Recovered/Resolved]
  - Anxiety [Recovered/Resolved]
  - Back pain [Recovered/Resolved]
  - Withdrawal syndrome [Recovered/Resolved]
  - Rebound effect [Unknown]
  - Intentional product use issue [Unknown]
  - Drug withdrawal syndrome [Recovered/Resolved]
  - Intentional product misuse [Unknown]
  - Adverse event [Unknown]
